FAERS Safety Report 7975598-7 (Version None)
Quarter: 2011Q4

REPORT INFORMATION
  Report Type: 
  Country: None (occurrence: None)
  Receive Date: 20111213
  Receipt Date: 20111004
  Transmission Date: 20120403
  Serious: No
  Sender: FDA-Public Use
  Company Number: US-AMGEN-USASP2011051122

PATIENT
  Age: 68 Year
  Sex: Female

DRUGS (2)
  1. ENBREL [Suspect]
     Indication: OSTEOARTHRITIS
  2. ENBREL [Suspect]
     Indication: CHONDROCALCINOSIS PYROPHOSPHATE
     Dosage: 50 MG, QWK
     Dates: start: 20110919

REACTIONS (4)
  - ARTHRITIS [None]
  - ABDOMINAL DISTENSION [None]
  - FATIGUE [None]
  - ASTHENIA [None]
